FAERS Safety Report 20069611 (Version 1)
Quarter: 2021Q4

REPORT INFORMATION
  Report Type: Spontaneous
  Country: US (occurrence: None)
  Receive Date: 20211114
  Receipt Date: 20211114
  Transmission Date: 20220304
  Serious: Yes (Disabling)
  Sender: FDA-Public Use
  Company Number: None

PATIENT
  Age: 50 Year
  Sex: Female
  Weight: 81 kg

DRUGS (1)
  1. NP THYROID [Suspect]
     Active Substance: LEVOTHYROXINE\LIOTHYRONINE
     Indication: Autoimmune thyroiditis
     Dosage: OTHER QUANTITY : 1 TABLET(S);?FREQUENCY : DAILY;?
     Route: 048
     Dates: start: 20210701

REACTIONS (17)
  - Product substitution issue [None]
  - Laboratory test abnormal [None]
  - Product taste abnormal [None]
  - Symptom recurrence [None]
  - Therapy change [None]
  - Malaise [None]
  - Dry skin [None]
  - Alopecia [None]
  - Swelling [None]
  - Rash [None]
  - Pruritus [None]
  - Headache [None]
  - Fatigue [None]
  - Appetite disorder [None]
  - Heart rate irregular [None]
  - Palpitations [None]
  - Mood swings [None]

NARRATIVE: CASE EVENT DATE: 20211027
